FAERS Safety Report 15344161 (Version 1)
Quarter: 2018Q3

REPORT INFORMATION
  Report Type: Spontaneous
  Country: US (occurrence: US)
  Receive Date: 20180903
  Receipt Date: 20180903
  Transmission Date: 20181010
  Serious: Yes (Hospitalization, Other)
  Sender: FDA-Public Use
  Company Number: US-APOTEX-2018AP020079

PATIENT
  Sex: Male
  Weight: 80 kg

DRUGS (12)
  1. SEROQUEL [Suspect]
     Active Substance: QUETIAPINE FUMARATE
     Indication: PARKINSON^S DISEASE
     Dosage: 12.5 MG, QD AT BEDTIME
     Route: 048
     Dates: start: 20170719
  2. KLONOPIN [Concomitant]
     Active Substance: CLONAZEPAM
     Indication: PRODUCT USED FOR UNKNOWN INDICATION
     Dosage: UNK
     Route: 065
  3. SINEMET [Concomitant]
     Active Substance: CARBIDOPA\LEVODOPA
     Indication: WHITE MATTER LESION
  4. SEROQUEL [Suspect]
     Active Substance: QUETIAPINE FUMARATE
     Indication: DEMENTIA WITH LEWY BODIES
     Dosage: 25 MG, QD NIGHTLY
     Route: 048
  5. SEROQUEL [Suspect]
     Active Substance: QUETIAPINE FUMARATE
     Indication: NEUROPSYCHIATRIC SYMPTOMS
     Dosage: 12.5 MG, QD BEDTIME
     Route: 048
  6. CEFEPIME [Suspect]
     Active Substance: CEFEPIME HYDROCHLORIDE
     Indication: URINARY TRACT INFECTION
     Dosage: UNK
     Route: 065
     Dates: start: 20170719
  7. PAXIL [Suspect]
     Active Substance: PAROXETINE HYDROCHLORIDE
     Indication: ANXIETY
     Dosage: UNK
     Route: 065
  8. NUPLAZID [Interacting]
     Active Substance: PIMAVANSERIN TARTRATE
     Indication: PARKINSON^S DISEASE PSYCHOSIS
     Dosage: 34 MG, QD
     Route: 048
     Dates: start: 20170719, end: 2018
  9. SINEMET [Concomitant]
     Active Substance: CARBIDOPA\LEVODOPA
     Indication: ATROPHY
  10. PAXIL [Interacting]
     Active Substance: PAROXETINE HYDROCHLORIDE
     Indication: DEPRESSION
  11. NUPLAZID [Interacting]
     Active Substance: PIMAVANSERIN TARTRATE
     Indication: DELUSION
  12. NUPLAZID [Interacting]
     Active Substance: PIMAVANSERIN TARTRATE
     Indication: HALLUCINATION

REACTIONS (11)
  - Night sweats [Unknown]
  - Fatigue [Unknown]
  - Confusional state [Recovered/Resolved]
  - Unresponsive to stimuli [Unknown]
  - Urinary tract infection [Not Recovered/Not Resolved]
  - Hypertension [Recovered/Resolved]
  - Renal surgery [Unknown]
  - Dizziness [Unknown]
  - Hallucination [Recovered/Resolved]
  - Drug interaction [Unknown]
  - Hypersomnia [Recovering/Resolving]
